FAERS Safety Report 20359094 (Version 1)
Quarter: 2022Q1

REPORT INFORMATION
  Report Type: Spontaneous
  Country: US (occurrence: US)
  Receive Date: 20220120
  Receipt Date: 20220120
  Transmission Date: 20220424
  Serious: No
  Sender: FDA-Public Use
  Company Number: US-TERSERA THERAPEUTICS LLC-2021TRS002085

PATIENT

DRUGS (7)
  1. PRIALT [Suspect]
     Active Substance: ZICONOTIDE ACETATE
     Indication: Spinal pain
     Dosage: UNK
     Route: 037
  2. BUPIVACAINE [Suspect]
     Active Substance: BUPIVACAINE
     Indication: Spinal pain
     Dosage: UNK
     Route: 037
  3. FENTANYL [Suspect]
     Active Substance: FENTANYL
     Indication: Spinal pain
     Dosage: 22.4 MCG
     Route: 037
  4. FENTANYL [Suspect]
     Active Substance: FENTANYL
     Dosage: INCREASED BY 2.3 MCG
     Route: 037
     Dates: start: 20210429
  5. FENTANYL [Suspect]
     Active Substance: FENTANYL
     Dosage: 22.4 MCG
     Route: 037
     Dates: start: 20210429
  6. HYDROMORPHONE [Suspect]
     Active Substance: HYDROMORPHONE
     Indication: Spinal pain
     Dosage: UNK
     Route: 037
  7. HYDROMORPHONE [Suspect]
     Active Substance: HYDROMORPHONE
     Dosage: DECREAED DOSE BY HALF
     Route: 037
     Dates: start: 20210429

REACTIONS (3)
  - Sensory disturbance [Unknown]
  - Electric shock sensation [Unknown]
  - Off label use [Unknown]

NARRATIVE: CASE EVENT DATE: 20210429
